FAERS Safety Report 16955005 (Version 2)
Quarter: 2019Q4

REPORT INFORMATION
  Report Type: Spontaneous
  Country: US (occurrence: US)
  Receive Date: 20191024
  Receipt Date: 20191118
  Transmission Date: 20200122
  Serious: No
  Sender: FDA-Public Use
  Company Number: NVSC2019US010652

PATIENT
  Age: 80 Year

DRUGS (2)
  1. TOBRADEX [Suspect]
     Active Substance: DEXAMETHASONE\TOBRAMYCIN
     Indication: EYE SWELLING
     Dosage: UNK
     Route: 065
     Dates: start: 20190905
  2. TOBRADEX [Suspect]
     Active Substance: DEXAMETHASONE\TOBRAMYCIN
     Indication: EYE COLOUR CHANGE

REACTIONS (2)
  - Drug ineffective [Unknown]
  - Vision blurred [Unknown]
